FAERS Safety Report 24028422 (Version 1)
Quarter: 2024Q2

REPORT INFORMATION
  Report Type: Spontaneous
  Country: US (occurrence: US)
  Receive Date: 20240628
  Receipt Date: 20240628
  Transmission Date: 20240716
  Serious: No
  Sender: FDA-Public Use
  Company Number: US-JNJFOC-20240602886

PATIENT
  Age: 67 Year
  Sex: Female

DRUGS (1)
  1. IMODIUM MULTI-SYMPTOM RELIEF [Suspect]
     Active Substance: DIMETHICONE\LOPERAMIDE HYDROCHLORIDE
     Indication: Diarrhoea
     Dosage: 4 CAPLETS MAXIMUM ONCE DAILY BUT 4 TIMES DAILY DEPENDING OF WHAT I^M HAVING
     Route: 048

REACTIONS (3)
  - Incorrect product administration duration [Unknown]
  - Incorrect dose administered [Unknown]
  - Product packaging issue [Unknown]
